FAERS Safety Report 19158153 (Version 1)
Quarter: 2021Q2

REPORT INFORMATION
  Report Type: Spontaneous
  Country: US (occurrence: US)
  Receive Date: 20210419
  Receipt Date: 20210419
  Transmission Date: 20210717
  Serious: No
  Sender: FDA-Public Use
  Company Number: None

PATIENT
  Age: 34 Year
  Sex: Female
  Weight: 58.5 kg

DRUGS (2)
  1. AJOVY [Suspect]
     Active Substance: FREMANEZUMAB-VFRM
     Indication: MIGRAINE
     Dosage: ?          QUANTITY:1 INJECTION(S);OTHER FREQUENCY:1X/MONTH;?
     Route: 058
     Dates: start: 20201120, end: 20210320
  2. VYVANSE [Concomitant]
     Active Substance: LISDEXAMFETAMINE DIMESYLATE

REACTIONS (10)
  - Injection site bruising [None]
  - Abnormal weight gain [None]
  - Feeling abnormal [None]
  - Injection site swelling [None]
  - Fatigue [None]
  - Injection site erythema [None]
  - Injection site warmth [None]
  - Disturbance in attention [None]
  - Injection site irritation [None]
  - Injection site pruritus [None]

NARRATIVE: CASE EVENT DATE: 20210320
